FAERS Safety Report 16687276 (Version 1)
Quarter: 2019Q3

REPORT INFORMATION
  Report Type: Spontaneous
  Country: US (occurrence: US)
  Receive Date: 20190624
  Receipt Date: 20190624
  Transmission Date: 20191004
  Serious: No
  Sender: FDA-Public Use
  Company Number: None

PATIENT
  Age: 51 Year
  Sex: Female

DRUGS (10)
  1. CALCIUM [Concomitant]
     Active Substance: CALCIUM
  2. ZOFRAN [Concomitant]
     Active Substance: ONDANSETRON HYDROCHLORIDE
  3. CLONEZEPAM [Concomitant]
  4. OXYCODONE [Concomitant]
     Active Substance: OXYCODONE
  5. OMPRAZOLE [Concomitant]
     Active Substance: OMEPRAZOLE
  6. BUPROPRION [Concomitant]
     Active Substance: BUPROPION
  7. KISQALI [Suspect]
     Active Substance: RIBOCICLIB
     Route: 048
  8. WELLBUTRIN [Concomitant]
     Active Substance: BUPROPION HYDROCHLORIDE
  9. IBUPROFEN. [Concomitant]
     Active Substance: IBUPROFEN
  10. ANASTRAZOLE [Concomitant]
     Active Substance: ANASTROZOLE

REACTIONS (2)
  - Headache [None]
  - Nausea [None]

NARRATIVE: CASE EVENT DATE: 20190621
